FAERS Safety Report 19645666 (Version 1)
Quarter: 2021Q3

REPORT INFORMATION
  Report Type: Spontaneous
  Country: CA (occurrence: CA)
  Receive Date: 20210731
  Receipt Date: 20210731
  Transmission Date: 20211014
  Serious: No
  Sender: FDA-Public Use
  Company Number: None

PATIENT
  Age: 55 Year
  Sex: Male
  Weight: 75 kg

DRUGS (1)
  1. OZEMPIC [Suspect]
     Active Substance: SEMAGLUTIDE
     Dates: start: 20210701, end: 20210731

REACTIONS (10)
  - Flatulence [None]
  - Eructation [None]
  - Regurgitation [None]
  - Insomnia [None]
  - Constipation [None]
  - Gastrooesophageal reflux disease [None]
  - Vomiting [None]
  - Abdominal pain upper [None]
  - Abdominal distension [None]
  - Bowel movement irregularity [None]

NARRATIVE: CASE EVENT DATE: 20210722
